FAERS Safety Report 8037564-5 (Version None)
Quarter: 2012Q1

REPORT INFORMATION
  Report Type: 
  Country: None (occurrence: None)
  Receive Date: 20120111
  Receipt Date: 20120103
  Transmission Date: 20120608
  Serious: Yes (Death)
  Sender: FDA-Public Use
  Company Number: US-ROXANE LABORATORIES, INC.-2012-RO-00323RO

PATIENT
  Age: 49 Year
  Sex: Female

DRUGS (1)
  1. METHADONE HCL [Suspect]
     Route: 048

REACTIONS (3)
  - HYPOXIC-ISCHAEMIC ENCEPHALOPATHY [None]
  - OVERDOSE [None]
  - CARDIAC ARREST [None]
